FAERS Safety Report 8694733 (Version 3)
Quarter: 2012Q4

REPORT INFORMATION
  Report Type: 
  Country: DE (occurrence: DE)
  Receive Date: 20120731
  Receipt Date: 20121010
  Transmission Date: 20130627
  Serious: Yes (Death, Life-Threatening, Hospitalization)
  Sender: FDA-Public Use
  Company Number: DE-JNJFOC-20120714335

PATIENT
  Age: 84 Year
  Sex: Male

DRUGS (10)
  1. XARELTO [Suspect]
     Indication: CEREBROVASCULAR ACCIDENT PROPHYLAXIS
     Route: 048
  2. XARELTO [Suspect]
     Indication: ATRIAL FIBRILLATION
     Route: 048
  3. TERAZOSIN [Concomitant]
     Indication: BENIGN PROSTATIC HYPERPLASIA
     Route: 048
  4. HYDROMORPHONE [Concomitant]
     Indication: PAIN
     Route: 048
  5. LYRICA [Concomitant]
     Indication: PAIN
     Route: 048
  6. SEVREDOL [Concomitant]
     Indication: NEURALGIA
     Route: 048
  7. LIDOCAINE [Concomitant]
     Route: 058
  8. FERRO SANOL [Concomitant]
     Route: 048
  9. TOREM [Concomitant]
     Route: 048
  10. AMITRIPTYLIN [Concomitant]
     Route: 048

REACTIONS (2)
  - Brain midline shift [Fatal]
  - Cerebral haemorrhage [Fatal]
